FAERS Safety Report 7549690 (Version 3)
Quarter: 2013Q4

REPORT INFORMATION
  Report Type: Spontaneous
  Country: US (occurrence: US)
  Receive Date: 20100823
  Receipt Date: 20131230
  Transmission Date: 20140711
  Serious: Yes (Hospitalization)
  Sender: FDA-Public Use
  Company Number: US-JNJFOC-20100805549

PATIENT
  Sex: Female
  Weight: 63.5 kg

DRUGS (7)
  1. SANDOZ FENTANYL TRANSDERMAL SYSTEM [Suspect]
     Indication: PAIN
     Route: 062
     Dates: end: 201007
  2. UNSPECIFIED FENTANYL TRANSDERMAL SYSTEM [Suspect]
     Indication: PAIN
     Route: 062
     Dates: start: 201007, end: 201008
  3. SANDOZ FENTANYL TRANSDERMAL SYSTEM [Suspect]
     Indication: PAIN
     Route: 062
     Dates: start: 201008
  4. CRESTOR [Concomitant]
     Indication: PRODUCT USED FOR UNKNOWN INDICATION
     Route: 048
  5. UNKNOWN MEDICATION [Concomitant]
     Indication: BLOOD CHOLESTEROL
     Route: 048
  6. XANAX [Concomitant]
     Indication: ANXIETY
     Route: 048
  7. SOMA [Concomitant]
     Indication: MUSCLE RELAXANT THERAPY
     Dosage: TID AS NEEDED
     Route: 048

REACTIONS (17)
  - Pneumonia [Recovered/Resolved]
  - Investigation [Recovered/Resolved]
  - Dizziness [Recovered/Resolved]
  - Loss of consciousness [Recovered/Resolved]
  - Product quality issue [Recovered/Resolved]
  - Product quality issue [Unknown]
  - Abnormal loss of weight [Unknown]
  - Application site vesicles [Unknown]
  - Application site burn [Unknown]
  - Vomiting [Unknown]
  - Gastric disorder [Unknown]
  - Pain [Not Recovered/Not Resolved]
  - Application site rash [Recovered/Resolved]
  - Chest discomfort [Unknown]
  - Drug dose omission [Unknown]
  - Application site ulcer [Unknown]
  - Device leakage [Unknown]
